FAERS Safety Report 6860587-6 (Version None)
Quarter: 2010Q3

REPORT INFORMATION
  Report Type: 
  Country: None (occurrence: None)
  Receive Date: 20100720
  Receipt Date: 20100712
  Transmission Date: 20110219
  Serious: Yes (Other)
  Sender: FDA-Public Use
  Company Number: AU-ROCHE-714800

PATIENT

DRUGS (1)
  1. DIAZEPAM [Suspect]
     Indication: PRODUCT USED FOR UNKNOWN INDICATION
     Dosage: DOSAGE REGIMEN: 2.5 MG 1 TIME
     Route: 042
     Dates: start: 20091115

REACTIONS (4)
  - BRADYCARDIA [None]
  - HYPOTENSION [None]
  - PULSE ABSENT [None]
  - UNRESPONSIVE TO STIMULI [None]
